FAERS Safety Report 13388985 (Version 1)
Quarter: 2017Q1

REPORT INFORMATION
  Report Type: Spontaneous
  Country: US (occurrence: US)
  Receive Date: 20170330
  Receipt Date: 20170330
  Transmission Date: 20170429
  Serious: Yes (Hospitalization, Other)
  Sender: FDA-Public Use
  Company Number: US-NOVOPROD-537430

PATIENT
  Age: 31 Year
  Sex: Male

DRUGS (2)
  1. HUMAN INSULIN [Suspect]
     Active Substance: INSULIN HUMAN
     Indication: TYPE 1 DIABETES MELLITUS
     Dosage: 3 U EVERY 6 HOURS
     Route: 065
  2. INSULIN GLARGINE [Suspect]
     Active Substance: INSULIN GLARGINE
     Indication: TYPE 1 DIABETES MELLITUS
     Dosage: 8 U, BID
     Route: 065

REACTIONS (4)
  - Dysphagia [Unknown]
  - Hypoglycaemia [Unknown]
  - Mental status changes [Unknown]
  - Hypoglycaemia unawareness [Unknown]
